FAERS Safety Report 21322144 (Version 1)
Quarter: 2022Q3

REPORT INFORMATION
  Report Type: Report from Study
  Country: BE (occurrence: BE)
  Receive Date: 20220912
  Receipt Date: 20220912
  Transmission Date: 20221026
  Serious: Yes (Life-Threatening, Other)
  Sender: FDA-Public Use
  Company Number: BE-NOVARTISPH-NVSC2021BE014729

PATIENT
  Sex: Female

DRUGS (3)
  1. SANDOSTATIN LAR DEPOT [Suspect]
     Active Substance: OCTREOTIDE ACETATE
     Indication: Neuroendocrine tumour
     Dosage: 30 MG
     Route: 030
     Dates: start: 20181024
  2. SANDOSTATIN LAR DEPOT [Suspect]
     Active Substance: OCTREOTIDE ACETATE
     Dosage: 30 MG
     Route: 030
  3. SANDOSTATIN LAR DEPOT [Suspect]
     Active Substance: OCTREOTIDE ACETATE

REACTIONS (12)
  - Near death experience [Unknown]
  - Neuroendocrine tumour [Unknown]
  - Malignant neoplasm progression [Unknown]
  - Weight decreased [Unknown]
  - General physical health deterioration [Not Recovered/Not Resolved]
  - Eating disorder [Unknown]
  - SARS-CoV-2 test positive [Unknown]
  - Pain [Unknown]
  - Nausea [Unknown]
  - Abdominal discomfort [Unknown]
  - Decreased appetite [Unknown]
  - Asthenia [Unknown]
